FAERS Safety Report 23862271 (Version 1)
Quarter: 2024Q2

REPORT INFORMATION
  Report Type: Report from Study
  Country: CA (occurrence: CA)
  Receive Date: 20240516
  Receipt Date: 20240516
  Transmission Date: 20240716
  Serious: Yes (Other)
  Sender: FDA-Public Use
  Company Number: CA-AKCEA THERAPEUTICS, INC.-2024IS004566

PATIENT

DRUGS (6)
  1. TEGSEDI [Suspect]
     Active Substance: INOTERSEN SODIUM
     Indication: Hereditary neuropathic amyloidosis
     Dosage: 284 MILLIGRAM, QW
     Route: 058
     Dates: start: 20210812
  2. TYLENOL ARTHRITIS PAIN [Concomitant]
     Active Substance: ACETAMINOPHEN
     Indication: Pain
     Dosage: UNK UNK, BID
     Route: 065
  3. ALDACTONE [Concomitant]
     Active Substance: SPIRONOLACTONE
     Indication: Diuretic therapy
     Dosage: 12.5 MILLIGRAM, QD
     Route: 048
  4. FUROSEMIDE [Concomitant]
     Active Substance: FUROSEMIDE
     Indication: Diuretic therapy
     Dosage: 40 MILLIGRAM, QD
     Route: 048
  5. PERINDOPRIL ERBUMINE [Concomitant]
     Active Substance: PERINDOPRIL ERBUMINE
     Indication: Blood pressure abnormal
     Dosage: 2 MILLIGRAM, QD
     Route: 048
  6. METOPROLOL [Concomitant]
     Active Substance: METOPROLOL
     Indication: Blood pressure abnormal
     Dosage: 12.5 MILLIGRAM, BID
     Route: 048

REACTIONS (12)
  - Red blood cell target cells present [Not Recovered/Not Resolved]
  - Monocyte count increased [Recovered/Resolved]
  - Haemoglobin decreased [Recovered/Resolved]
  - Injection site erythema [Recovering/Resolving]
  - Burning sensation [Not Recovered/Not Resolved]
  - Haematocrit decreased [Recovered/Resolved]
  - Insomnia [Recovering/Resolving]
  - Malaise [Recovering/Resolving]
  - Mood altered [Recovering/Resolving]
  - Somnolence [Recovering/Resolving]
  - Injection site pain [Not Recovered/Not Resolved]
  - Nausea [Not Recovered/Not Resolved]

NARRATIVE: CASE EVENT DATE: 20210801
